FAERS Safety Report 16376228 (Version 2)
Quarter: 2019Q2

REPORT INFORMATION
  Report Type: Spontaneous
  Country: PE (occurrence: PE)
  Receive Date: 20190531
  Receipt Date: 20190617
  Transmission Date: 20190711
  Serious: Yes (Other)
  Sender: FDA-Public Use
  Company Number: PE-ROCHE-2328706

PATIENT
  Sex: Female

DRUGS (2)
  1. HERCEPTIN [Suspect]
     Active Substance: TRASTUZUMAB
     Indication: BREAST CANCER
     Route: 065
     Dates: start: 201811
  2. PACLITAXEL. [Concomitant]
     Active Substance: PACLITAXEL

REACTIONS (5)
  - Metastases to liver [Unknown]
  - Lung disorder [Unknown]
  - Metastasis [Unknown]
  - Metastases to lung [Unknown]
  - Infection [Unknown]
